FAERS Safety Report 6259726-X (Version None)
Quarter: 2009Q3

REPORT INFORMATION
  Report Type: 
  Country: None (occurrence: None)
  Receive Date: 20090701
  Receipt Date: 20090623
  Transmission Date: 20100115
  Serious: Yes (Other)
  Sender: FDA-Public Use
  Company Number: CHPA2009US14122

PATIENT
  Age: 42 Year
  Sex: Male

DRUGS (2)
  1. VOLTAREN [Suspect]
     Indication: CARPAL TUNNEL SYNDROME
  2. VOLTAREN [Suspect]
     Indication: TENDONITIS

REACTIONS (13)
  - ASTHENIA [None]
  - BLOOD PRESSURE ABNORMAL [None]
  - CHEST DISCOMFORT [None]
  - CHROMATURIA [None]
  - DIZZINESS [None]
  - DYSPNOEA [None]
  - HEART RATE INCREASED [None]
  - HEART RATE IRREGULAR [None]
  - HEMIPARESIS [None]
  - MOOD ALTERED [None]
  - NAUSEA [None]
  - OFF LABEL USE [None]
  - SWOLLEN TONGUE [None]
